FAERS Safety Report 11326318 (Version 2)
Quarter: 2018Q2

REPORT INFORMATION
  Report Type: Report from Study
  Country: JP (occurrence: JP)
  Receive Date: 20150731
  Receipt Date: 20180402
  Transmission Date: 20180711
  Serious: Yes (Death, Life-Threatening)
  Sender: FDA-Public Use
  Company Number: JP-MERCK-1504JPN008112

PATIENT
  Age: 56 Year
  Sex: Male
  Weight: 72 kg

DRUGS (15)
  1. MEROPEN [Concomitant]
     Active Substance: MEROPENEM
     Indication: STAPHYLOCOCCAL SEPSIS
     Dosage: 0.5 G, QD
     Route: 041
     Dates: start: 20140716, end: 20140721
  2. HANP [Concomitant]
     Active Substance: CARPERITIDE
     Dosage: 1.5 MG, QD
     Route: 042
     Dates: start: 201407, end: 20140723
  3. LASIX [Concomitant]
     Active Substance: FUROSEMIDE
     Dosage: UNK MG, UNK
     Route: 065
  4. CALONAL [Concomitant]
     Active Substance: ACETAMINOPHEN
     Dosage: 300 MG, TID
     Route: 048
     Dates: start: 2014, end: 20140723
  5. FUROSEMIDE. [Concomitant]
     Active Substance: FUROSEMIDE
     Dosage: 80 MG, QID
     Route: 042
     Dates: start: 201407, end: 20140723
  6. HEPARINOID [Concomitant]
     Active Substance: CHONDROITIN SULFATE (BOVINE)
     Dosage: 1000 IU, QD
     Route: 051
     Dates: start: 201407, end: 20140723
  7. FLUITRAN [Concomitant]
     Active Substance: TRICHLORMETHIAZIDE
     Dosage: 4 MG, QD
     Route: 048
     Dates: start: 2011, end: 20140723
  8. INOVAN [Concomitant]
     Active Substance: DOPAMINE HYDROCHLORIDE
     Indication: URINE OUTPUT DECREASED
     Dosage: 150 MG, BID
     Route: 042
     Dates: start: 201407, end: 20140720
  9. INOVAN [Concomitant]
     Active Substance: DOPAMINE HYDROCHLORIDE
     Dosage: 150 MG, QID
     Route: 042
     Dates: start: 20140721, end: 20140723
  10. SAMSCA [Concomitant]
     Active Substance: TOLVAPTAN
     Dosage: 15 MG, QD
     Route: 048
     Dates: start: 2014, end: 20140723
  11. ARTIST [Concomitant]
     Active Substance: CARVEDILOL
     Dosage: 5 MG, QD
     Route: 048
     Dates: start: 2007, end: 20140723
  12. CUBICIN [Suspect]
     Active Substance: DAPTOMYCIN
     Indication: STAPHYLOCOCCAL SEPSIS
     Dosage: 430 MG, QOD
     Route: 041
     Dates: start: 20140717, end: 20140722
  13. RHYTHMY [Concomitant]
     Active Substance: RILMAZAFONE HYDROCHLORIDE
     Dosage: 2 MG, QD
     Route: 048
     Dates: start: 201404, end: 20140723
  14. TAKEPRON [Concomitant]
     Active Substance: LANSOPRAZOLE
     Dosage: 15 MG, QD
     Route: 048
     Dates: start: 2011, end: 20140723
  15. BFLUID [Concomitant]
     Active Substance: AMINO ACIDS\DEXTROSE\ELECTROLYTES NOS\VITAMINS
     Dosage: 1 L, QD
     Route: 042
     Dates: start: 201307, end: 20140723

REACTIONS (7)
  - Cardiac failure [Fatal]
  - Urine output decreased [Not Recovered/Not Resolved]
  - Blood urea increased [Not Recovered/Not Resolved]
  - Blood creatinine increased [Not Recovered/Not Resolved]
  - Weight increased [Not Recovered/Not Resolved]
  - Dyspnoea [Not Recovered/Not Resolved]
  - Hyperkalaemia [Not Recovered/Not Resolved]

NARRATIVE: CASE EVENT DATE: 20140721
